FAERS Safety Report 7717842-7 (Version None)
Quarter: 2011Q3

REPORT INFORMATION
  Report Type: 
  Country: None (occurrence: None)
  Receive Date: 20110824
  Receipt Date: 20110810
  Transmission Date: 20111222
  Serious: Yes (Hospitalization, Other)
  Sender: FDA-Public Use
  Company Number: 2011SP038238

PATIENT
  Sex: Male

DRUGS (4)
  1. RIBAVIRIN [Suspect]
     Indication: HEPATITIS C
     Dates: start: 20110803
  2. PEGASYS [Suspect]
     Indication: HEPATITIS C
     Dates: start: 20091201, end: 20101201
  3. PEG-INTRON [Suspect]
     Indication: HEPATITIS C
     Dates: start: 20110803
  4. COPEGUS [Suspect]
     Indication: PRODUCT USED FOR UNKNOWN INDICATION

REACTIONS (8)
  - NEUROPATHY PERIPHERAL [None]
  - ABDOMINAL PAIN [None]
  - WHITE BLOOD CELL COUNT ABNORMAL [None]
  - BLISTER [None]
  - ANGER [None]
  - THERMAL BURN [None]
  - SKIN DISORDER [None]
  - GASTROINTESTINAL PAIN [None]
